FAERS Safety Report 15023467 (Version 1)
Quarter: 2018Q2

REPORT INFORMATION
  Report Type: Spontaneous
  Country: US (occurrence: US)
  Receive Date: 20180602
  Receipt Date: 20180602
  Transmission Date: 20180711
  Serious: Yes (Disabling)
  Sender: FDA-Public Use
  Company Number: None

PATIENT
  Age: 45 Year
  Sex: Female
  Weight: 108 kg

DRUGS (5)
  1. SYNTHROID [Concomitant]
     Active Substance: LEVOTHYROXINE SODIUM
  2. ZYRTEC [Concomitant]
     Active Substance: CETIRIZINE HYDROCHLORIDE
  3. WELCHOL [Suspect]
     Active Substance: COLESEVELAM HYDROCHLORIDE
     Indication: DIARRHOEA
     Dosage: ?          QUANTITY:3 DF DOSAGE FORM;?
     Route: 048
  4. ONE A DAY WOMENS MULTIVITAMIN 50+ [Concomitant]
  5. ESTRADIOL. [Concomitant]
     Active Substance: ESTRADIOL

REACTIONS (6)
  - Fatigue [None]
  - Myalgia [None]
  - Arthralgia [None]
  - Gait disturbance [None]
  - Weight increased [None]
  - Muscle spasms [None]

NARRATIVE: CASE EVENT DATE: 20140413
